FAERS Safety Report 4367467-9 (Version None)
Quarter: 2004Q2

REPORT INFORMATION
  Report Type: 
  Country: None (occurrence: None)
  Receive Date: 20040528
  Receipt Date: 20040329
  Transmission Date: 20050107
  Serious: Yes (Hospitalization)
  Sender: FDA-Public Use
  Company Number: CIP04000664

PATIENT
  Age: 89 Year
  Sex: Female

DRUGS (4)
  1. ACTONEL [Suspect]
     Indication: OSTEOPOROSIS
     Dosage: 30 MG ONCE WEEKLY, ORAL
     Route: 048
     Dates: end: 20030401
  2. ACTONEL [Suspect]
     Indication: OSTEOPOROSIS
     Dosage: 35 MG ONCE WEEKLY, ORAL
     Route: 048
     Dates: start: 20031001
  3. ATENOLOL [Concomitant]
  4. PHENOBARBITAL TAB [Concomitant]

REACTIONS (4)
  - ASTHMA [None]
  - BRONCHOPNEUMONIA [None]
  - CATARACT [None]
  - FEELING ABNORMAL [None]
